FAERS Safety Report 19345869 (Version 2)
Quarter: 2021Q4

REPORT INFORMATION
  Report Type: Spontaneous
  Country: US (occurrence: US)
  Receive Date: 20210531
  Receipt Date: 20211227
  Transmission Date: 20220303
  Serious: Yes (Disabling, Other)
  Sender: FDA-Public Use
  Company Number: US-PURDUE PHARMA-USA-2020-0191067

PATIENT
  Age: 44 Year
  Sex: Male

DRUGS (4)
  1. OXYCODONE HYDROCHLORIDE [Suspect]
     Active Substance: OXYCODONE HYDROCHLORIDE
     Indication: Pain management
     Dosage: 10 MG, UNK
     Route: 065
     Dates: start: 201703, end: 20180130
  2. MOBIC [Concomitant]
     Active Substance: MELOXICAM
     Indication: Pain
     Dosage: UNKNOWN
     Route: 065
     Dates: start: 20200103
  3. BACLOFEN [Concomitant]
     Active Substance: BACLOFEN
     Indication: Pain
     Dosage: UNKNOWN
     Route: 065
     Dates: start: 20200101
  4. TYLENOL                            /00020001/ [Concomitant]
     Indication: Pain
     Dosage: UNKNOWN
     Route: 065
     Dates: start: 20200101

REACTIONS (7)
  - Drug dependence [Unknown]
  - Constipation [Unknown]
  - Psychological trauma [Unknown]
  - Dyspepsia [Unknown]
  - Pain [Unknown]
  - Gastrointestinal disorder [Unknown]
  - Behaviour disorder [Unknown]

NARRATIVE: CASE EVENT DATE: 20170301
